FAERS Safety Report 5712327-1 (Version None)
Quarter: 2008Q2

REPORT INFORMATION
  Report Type: 
  Country: None (occurrence: None)
  Receive Date: 20080417
  Receipt Date: 20080408
  Transmission Date: 20081010
  Serious: Yes (Other)
  Sender: FDA-Public Use
  Company Number: 163-20785-08040697

PATIENT
  Age: 69 Year
  Sex: Male

DRUGS (2)
  1. THALOMID [Suspect]
     Indication: MULTIPLE MYELOMA
     Dosage: 150 MG, 3 IN 1 D, ORAL; 50MG, 100MG, 150MG, 200MG, DAILY, ORAL
     Route: 048
     Dates: start: 20051219, end: 20070401
  2. THALOMID [Suspect]
     Indication: MULTIPLE MYELOMA
     Dosage: 150 MG, 3 IN 1 D, ORAL; 50MG, 100MG, 150MG, 200MG, DAILY, ORAL
     Route: 048
     Dates: start: 20070412, end: 20070701

REACTIONS (1)
  - ATRIOVENTRICULAR BLOCK SECOND DEGREE [None]
